FAERS Safety Report 9167588 (Version 1)
Quarter: 2013Q1

REPORT INFORMATION
  Report Type: Spontaneous
  Country: GB (occurrence: None)
  Receive Date: 20130304
  Receipt Date: 20130304
  Transmission Date: 20140127
  Serious: Yes (Hospitalization)
  Sender: FDA-Public Use
  Company Number: KAD201302-000248

PATIENT
  Age: 51 Year
  Sex: 0

DRUGS (11)
  1. RIBAVIRIN [Suspect]
     Indication: HEPATITIS C
     Route: 048
     Dates: start: 20121218
  2. TELAPREVIR [Suspect]
     Indication: HEPATITIS C
     Route: 048
     Dates: start: 20121218
  3. PEGINTERFERON ALFA-2A [Suspect]
     Indication: HEPATITIS C
     Dates: start: 20121218
  4. VITAMIN B (VITAMIN B SUBSTANCES) [Concomitant]
  5. THIAMINE (THIAMINE VITAMIN B SUBSTANCES) [Concomitant]
  6. CITALOPRAM (CITALOPRAM) [Concomitant]
  7. DIHYDROCODEINE (DIHYDROCODEINE) [Concomitant]
  8. FERROUS SULPHATE (IRON) [Concomitant]
  9. GABAPENTIN (GABAPENTIN) [Concomitant]
  10. OMEPRAZOLE (OMEPRAZOLE) [Concomitant]
  11. PROPRANOLOL (PROPRANOLOL) [Concomitant]

REACTIONS (8)
  - Cough [None]
  - Hepatic cirrhosis [None]
  - Decreased appetite [None]
  - Fatigue [None]
  - Lethargy [None]
  - Nausea [None]
  - Thrombocytopenia [None]
  - Vomiting [None]
